FAERS Safety Report 5216013-6 (Version None)
Quarter: 2007Q1

REPORT INFORMATION
  Report Type: 
  Country: None (occurrence: None)
  Receive Date: 20061122
  Receipt Date: 20060327
  Transmission Date: 20070707
  Serious: Yes (Other)
  Sender: FDA-Public Use
  Company Number: 2006032323

PATIENT
  Age: 62 Year
  Sex: Female

DRUGS (6)
  1. LIPITOR [Suspect]
     Indication: ILL-DEFINED DISORDER
     Dosage: 10 MG
     Dates: start: 20050501, end: 20060301
  2. TOPROL-XL [Concomitant]
  3. VALSARTAN [Concomitant]
  4. CLONIDINE [Concomitant]
  5. AMBIEN [Concomitant]
  6. DIVAN HCT (HYDROCHLOROTHIAZIDE, VALSARTAN) [Concomitant]

REACTIONS (3)
  - BLOOD CREATINE PHOSPHOKINASE INCREASED [None]
  - HEPATIC ENZYME INCREASED [None]
  - MYALGIA [None]
